FAERS Safety Report 20279028 (Version 1)
Quarter: 2022Q1

REPORT INFORMATION
  Report Type: Other
  Country: DK (occurrence: DK)
  Receive Date: 20220103
  Receipt Date: 20220103
  Transmission Date: 20220423
  Serious: Yes (Life-Threatening, Hospitalization)
  Sender: FDA-Public Use
  Company Number: DK-STADA-239002

PATIENT
  Age: 75 Year
  Sex: Male

DRUGS (8)
  1. RITUXIMAB [Suspect]
     Active Substance: RITUXIMAB
     Indication: Chronic lymphocytic leukaemia
     Dosage: 3 DOSES
     Route: 065
     Dates: start: 2017
  2. RITUXIMAB [Suspect]
     Active Substance: RITUXIMAB
     Indication: Chronic lymphocytic leukaemia
     Dosage: 5 DOSES
     Route: 065
     Dates: start: 2015
  3. FLUDARABINE [Suspect]
     Active Substance: FLUDARABINE PHOSPHATE
     Indication: Chronic lymphocytic leukaemia
     Route: 065
     Dates: start: 2017
  4. IBRUTINIB [Suspect]
     Active Substance: IBRUTINIB
     Indication: Chronic lymphocytic leukaemia
     Route: 065
     Dates: start: 201801, end: 202001
  5. BENDAMUSTINE [Suspect]
     Active Substance: BENDAMUSTINE
     Indication: Chronic lymphocytic leukaemia
     Dosage: 4 DOSES
     Route: 065
     Dates: start: 2015
  6. CYCLOPHOSPHAMIDE [Suspect]
     Active Substance: CYCLOPHOSPHAMIDE
     Indication: Chronic lymphocytic leukaemia
     Dosage: 3 DOSES
     Route: 065
     Dates: start: 2017
  7. DEXAMETHASONE [Concomitant]
     Active Substance: DEXAMETHASONE
  8. REMDESIVIR [Concomitant]
     Active Substance: REMDESIVIR

REACTIONS (3)
  - Off label use [Unknown]
  - COVID-19 [Not Recovered/Not Resolved]
  - Humoral immune defect [Not Recovered/Not Resolved]

NARRATIVE: CASE EVENT DATE: 20200101
